FAERS Safety Report 4410603-6 (Version None)
Quarter: 2004Q3

REPORT INFORMATION
  Report Type: 
  Country: None (occurrence: None)
  Receive Date: 20040726
  Receipt Date: 20040714
  Transmission Date: 20050211
  Serious: Yes (Other)
  Sender: FDA-Public Use
  Company Number: 139567USA

PATIENT
  Age: 5 Month
  Sex: Male

DRUGS (1)
  1. COPAXONE [Suspect]
     Dates: end: 20021130

REACTIONS (2)
  - CEREBROVASCULAR ACCIDENT [None]
  - DRUG EXPOSURE DURING PREGNANCY [None]
